FAERS Safety Report 24855689 (Version 1)
Quarter: 2025Q1

REPORT INFORMATION
  Report Type: Spontaneous
  Country: US (occurrence: None)
  Receive Date: 20250116
  Receipt Date: 20250116
  Transmission Date: 20250408
  Serious: Yes (Hospitalization)
  Sender: FDA-CTU
  Company Number: None

PATIENT
  Sex: Female

DRUGS (6)
  1. TADALAFIL [Suspect]
     Active Substance: TADALAFIL
     Dosage: FREQUENCY : DAILY;?
     Route: 048
     Dates: start: 202403
  2. REMODULIN [Suspect]
     Active Substance: TREPROSTINIL
  3. REMODULIN EMGCY PREMX (BRG) [Concomitant]
  4. UPTRAVI [Concomitant]
     Active Substance: SELEXIPAG
  5. LETAIRIS [Concomitant]
     Active Substance: AMBRISENTAN
  6. C-TREPROSTINIL(3ML)RM [Concomitant]

REACTIONS (4)
  - Rectal haemorrhage [None]
  - Hypotension [None]
  - Dyspnoea [None]
  - Therapy cessation [None]
